FAERS Safety Report 22823284 (Version 2)
Quarter: 2023Q4

REPORT INFORMATION
  Report Type: Spontaneous
  Country: PT (occurrence: PT)
  Receive Date: 20230815
  Receipt Date: 20231006
  Transmission Date: 20240110
  Serious: Yes (Other)
  Sender: FDA-Public Use
  Company Number: None

PATIENT
  Age: 39 Year
  Sex: Female
  Weight: 100 kg

DRUGS (1)
  1. ULTRAVIST [Suspect]
     Active Substance: IOPROMIDE
     Indication: Diagnostic procedure
     Dosage: 1ML/KG
     Route: 042
     Dates: start: 20230730, end: 20230730

REACTIONS (3)
  - Rash papular [Recovered/Resolved]
  - Pruritus [Recovered/Resolved]
  - Miliaria [Recovered/Resolved]

NARRATIVE: CASE EVENT DATE: 20230730
